FAERS Safety Report 5989672-8 (Version None)
Quarter: 2008Q4

REPORT INFORMATION
  Report Type: 
  Country: None (occurrence: None)
  Receive Date: 20081208
  Receipt Date: 20081121
  Transmission Date: 20090506
  Serious: Yes (Hospitalization, Other)
  Sender: FDA-Public Use
  Company Number: FON_00013_2008

PATIENT
  Sex: Male
  Weight: 60 kg

DRUGS (6)
  1. ROCALTROL [Suspect]
     Indication: CALCIUM DEFICIENCY
     Dosage: (0.25 UG QD ORAL), (0.25 UG, DRUG TAKEN EVERY SEVERAL DAYS ORAL)
     Route: 048
     Dates: start: 19910101, end: 20060101
  2. ROCALTROL [Suspect]
     Indication: CALCIUM DEFICIENCY
     Dosage: (0.25 UG QD ORAL), (0.25 UG, DRUG TAKEN EVERY SEVERAL DAYS ORAL)
     Route: 048
     Dates: start: 20060101
  3. CELLCEPT [Suspect]
     Indication: RENAL TRANSPLANT
     Dosage: (1.5 G ORAL)
     Route: 048
     Dates: start: 20060101
  4. PREDNISONE [Suspect]
     Indication: RENAL TRANSPLANT
     Dosage: DF
     Dates: start: 19910101
  5. TACROLIMUS [Concomitant]
  6. MEDROL [Concomitant]

REACTIONS (8)
  - CONDITION AGGRAVATED [None]
  - DYSPEPSIA [None]
  - MUSCLE SPASMS [None]
  - NO THERAPEUTIC RESPONSE [None]
  - OSTEONECROSIS [None]
  - REGURGITATION [None]
  - RENAL FAILURE [None]
  - RENAL TRANSPLANT [None]
